FAERS Safety Report 4474778-5 (Version None)
Quarter: 2004Q3

REPORT INFORMATION
  Report Type: 
  Country: None (occurrence: None)
  Receive Date: 20040923
  Receipt Date: 20040614
  Transmission Date: 20050211
  Serious: No
  Sender: FDA-Public Use
  Company Number: USA040670025

PATIENT
  Age: 74 Year
  Sex: Female
  Weight: 63 kg

DRUGS (5)
  1. FORTEO [Suspect]
     Indication: OSTEOPOROSIS
     Dosage: 20 UG/1DAY
     Dates: start: 20040601
  2. DHEA [Concomitant]
  3. TIMOLOL MALEATE [Concomitant]
  4. CALCIUM [Concomitant]
  5. VITAMIN D [Concomitant]

REACTIONS (17)
  - ABDOMINAL PAIN UPPER [None]
  - ANOREXIA [None]
  - APHONIA [None]
  - ARTHRALGIA [None]
  - BACK PAIN [None]
  - BRONCHITIS [None]
  - COLD SWEAT [None]
  - COUGH [None]
  - DIARRHOEA [None]
  - DYSPHAGIA [None]
  - FEELING ABNORMAL [None]
  - HYPERTENSION [None]
  - INSOMNIA [None]
  - PAIN [None]
  - POLLAKIURIA [None]
  - RETCHING [None]
  - UPPER RESPIRATORY TRACT CONGESTION [None]
